FAERS Safety Report 20003233 (Version 4)
Quarter: 2021Q4

REPORT INFORMATION
  Report Type: Spontaneous
  Country: US (occurrence: US)
  Receive Date: 20211027
  Receipt Date: 20211222
  Transmission Date: 20220303
  Serious: No
  Sender: FDA-Public Use
  Company Number: US-GSKCCFUS-CASE-01201451_AE-70330

PATIENT
  Age: 58 Year
  Sex: Female

DRUGS (2)
  1. BREO ELLIPTA [Suspect]
     Active Substance: FLUTICASONE FUROATE\VILANTEROL TRIFENATATE
     Indication: Chronic obstructive pulmonary disease
     Dosage: 1 PUFF(S), QD (100/25)
     Route: 055
  2. ALBUTEROL [Concomitant]
     Active Substance: ALBUTEROL
     Indication: Product used for unknown indication
     Dosage: UNK

REACTIONS (5)
  - Dyspnoea [Unknown]
  - Oxygen saturation decreased [Not Recovered/Not Resolved]
  - Wrong technique in device usage process [Unknown]
  - Drug ineffective [Unknown]
  - Product complaint [Unknown]

NARRATIVE: CASE EVENT DATE: 20211001
